FAERS Safety Report 24920003 (Version 1)
Quarter: 2025Q1

REPORT INFORMATION
  Report Type: Report from Study
  Country: US (occurrence: US)
  Receive Date: 20250204
  Receipt Date: 20250204
  Transmission Date: 20250409
  Serious: No
  Sender: EXELIXIS
  Company Number: US-EXELIXIS-CABO-24072665

PATIENT
  Sex: Male

DRUGS (5)
  1. CABOMETYX [Suspect]
     Active Substance: CABOZANTINIB S-MALATE
     Indication: Renal cancer
     Dosage: 20 MG, QD
     Route: 048
     Dates: start: 20231228, end: 20240227
  2. DOCUSATE SOD [Concomitant]
  3. ELIQUIS [Concomitant]
     Active Substance: APIXABAN
  4. LEVOTHYROXINE [Concomitant]
     Active Substance: LEVOTHYROXINE
  5. LASIX [Concomitant]
     Active Substance: FUROSEMIDE

REACTIONS (16)
  - Peripheral swelling [Not Recovered/Not Resolved]
  - Toothache [Recovering/Resolving]
  - Gingival bleeding [Recovering/Resolving]
  - Epistaxis [Recovering/Resolving]
  - Taste disorder [Unknown]
  - Decreased appetite [Recovering/Resolving]
  - Fatigue [Unknown]
  - Constipation [Unknown]
  - Drug ineffective [Unknown]
  - Somnolence [Unknown]
  - Pleural effusion [Unknown]
  - Genital swelling [Unknown]
  - Oedema peripheral [Unknown]
  - Pain [Unknown]
  - Depression [Unknown]
  - Dyspnoea [Unknown]
